FAERS Safety Report 19007242 (Version 1)
Quarter: 2021Q1

REPORT INFORMATION
  Report Type: Spontaneous
  Country: US (occurrence: US)
  Receive Date: 20210313
  Receipt Date: 20210313
  Transmission Date: 20210420
  Serious: No
  Sender: FDA-Public Use
  Company Number: None

PATIENT
  Age: 40 Year
  Sex: Male

DRUGS (17)
  1. VITAMIN B12 [Concomitant]
     Active Substance: CYANOCOBALAMIN
  2. VITAMIN D [Concomitant]
     Active Substance: VITAMIN D NOS
  3. NORDITROPIN [Suspect]
     Active Substance: SOMATROPIN
     Indication: PRODUCT USED FOR UNKNOWN INDICATION
     Route: 058
  4. FISH OIL [Concomitant]
     Active Substance: FISH OIL
  5. LEXAPRO [Concomitant]
     Active Substance: ESCITALOPRAM OXALATE
  6. LUNESTA [Concomitant]
     Active Substance: ESZOPICLONE
  7. SEROQUEL [Concomitant]
     Active Substance: QUETIAPINE FUMARATE
  8. METFORMIN HCL [Concomitant]
     Active Substance: METFORMIN HYDROCHLORIDE
  9. NORDITROPIN [Suspect]
     Active Substance: SOMATROPIN
     Indication: CRANIOCEREBRAL INJURY
     Route: 058
  10. ADIPEX?P [Concomitant]
     Active Substance: PHENTERMINE HYDROCHLORIDE
  11. LATUDA [Concomitant]
     Active Substance: LURASIDONE HYDROCHLORIDE
  12. FLONASE [Concomitant]
     Active Substance: FLUTICASONE PROPIONATE
  13. LAMICTAL [Concomitant]
     Active Substance: LAMOTRIGINE
  14. MOBIC [Concomitant]
     Active Substance: MELOXICAM
  15. CORTEF [Concomitant]
     Active Substance: HYDROCORTISONE
  16. PRILOSEC [Concomitant]
     Active Substance: OMEPRAZOLE MAGNESIUM
  17. NOVOFINE [Concomitant]
     Active Substance: INSULIN NOS

REACTIONS (2)
  - Neck injury [None]
  - Seizure [None]
